FAERS Safety Report 5320698-3 (Version None)
Quarter: 2007Q2

REPORT INFORMATION
  Report Type: 
  Country: None (occurrence: None)
  Receive Date: 20070509
  Receipt Date: 20070427
  Transmission Date: 20071010
  Serious: Yes (Other)
  Sender: FDA-Public Use
  Company Number: JP-PFIZER INC-2007034982

PATIENT
  Sex: Male

DRUGS (4)
  1. NORVASC [Suspect]
     Indication: HYPERTENSION
     Route: 048
  2. RENIVACE [Suspect]
     Indication: HYPERTENSION
     Route: 048
  3. LENDORMIN [Concomitant]
     Route: 048
  4. HALCION [Concomitant]
     Route: 048

REACTIONS (1)
  - BLOOD PRESSURE INADEQUATELY CONTROLLED [None]
